FAERS Safety Report 14027975 (Version 1)
Quarter: 2017Q3

REPORT INFORMATION
  Report Type: Spontaneous
  Country: US (occurrence: None)
  Receive Date: 20170929
  Receipt Date: 20170929
  Transmission Date: 20171128
  Serious: No
  Sender: FDA-Public Use
  Company Number: None

PATIENT
  Age: 64 Year
  Sex: Female

DRUGS (1)
  1. ENBREL [Suspect]
     Active Substance: ETANERCEPT

REACTIONS (5)
  - Manufacturing product shipping issue [None]
  - Musculoskeletal stiffness [None]
  - Muscle spasms [None]
  - Product storage error [None]
  - Joint stiffness [None]

NARRATIVE: CASE EVENT DATE: 20170929
